FAERS Safety Report 20362907 (Version 3)
Quarter: 2022Q1

REPORT INFORMATION
  Report Type: Spontaneous
  Country: NL (occurrence: NL)
  Receive Date: 20220121
  Receipt Date: 20220201
  Transmission Date: 20220423
  Serious: Yes (Other)
  Sender: FDA-Public Use
  Company Number: None

PATIENT
  Age: 24 Year
  Sex: Male

DRUGS (11)
  1. ANAKINRA [Suspect]
     Active Substance: ANAKINRA
     Indication: Evidence based treatment
     Dosage: UNK
  2. CYTARABINE [Suspect]
     Active Substance: CYTARABINE
     Indication: Neurodegenerative disorder
     Dosage: UNK (ADMINISTERED FOUR COURSES OF THE THERAPY)
  3. VEMURAFENIB [Suspect]
     Active Substance: VEMURAFENIB
     Indication: Langerhans^ cell histiocytosis
     Dosage: UNK
  4. MERCAPTOPURINE [Suspect]
     Active Substance: MERCAPTOPURINE
     Indication: Langerhans^ cell histiocytosis
     Dosage: UNK (MAINTENANCE PHASE)
  5. VINBLASTINE [Suspect]
     Active Substance: VINBLASTINE
     Indication: Neurodegenerative disorder
     Dosage: UNK (MAINTENANCE PHASE)
  6. LEUSTATIN [Suspect]
     Active Substance: CLADRIBINE
     Indication: Langerhans^ cell histiocytosis
     Dosage: UNK
  7. PREDNISOLONE [Suspect]
     Active Substance: PREDNISOLONE
     Indication: Langerhans^ cell histiocytosis
     Dosage: UNK (ADMINISTERED 4 COURSES OF THERAPY)
  8. PREDNISOLONE [Suspect]
     Active Substance: PREDNISOLONE
     Indication: Neurodegenerative disorder
     Dosage: MAINTENANCE THERAPY
  9. VINBLASTINE [Suspect]
     Active Substance: VINBLASTINE
     Indication: Langerhans^ cell histiocytosis
  10. CYTARABINE [Suspect]
     Active Substance: CYTARABINE
     Indication: Langerhans^ cell histiocytosis
  11. CLADRIBINE [Suspect]
     Active Substance: CLADRIBINE
     Indication: Langerhans^ cell histiocytosis

REACTIONS (7)
  - Skin toxicity [Unknown]
  - Magnetic resonance imaging head abnormal [Unknown]
  - Dysarthria [Unknown]
  - Ataxia [Unknown]
  - Drug ineffective [Unknown]
  - Product use in unapproved indication [Unknown]
  - Off label use [Unknown]
